FAERS Safety Report 8289355-8 (Version None)
Quarter: 2012Q2

REPORT INFORMATION
  Report Type: 
  Country: None (occurrence: None)
  Receive Date: 20120417
  Receipt Date: 20120403
  Transmission Date: 20120825
  Serious: Yes (Hospitalization, Other)
  Sender: FDA-Public Use
  Company Number: US-RANBAXY-2012US-55391

PATIENT

DRUGS (1)
  1. ISOTRETINOIN [Suspect]
     Indication: ACNE
     Dosage: UNK, UNK
     Route: 048
     Dates: start: 20060105, end: 20060703

REACTIONS (10)
  - DIARRHOEA [None]
  - IRRITABLE BOWEL SYNDROME [None]
  - COLITIS [None]
  - OEDEMA [None]
  - INFLAMMATORY BOWEL DISEASE [None]
  - COLITIS ULCERATIVE [None]
  - RECTAL HAEMORRHAGE [None]
  - ANAEMIA [None]
  - ABDOMINAL PAIN [None]
  - GASTROINTESTINAL DISORDER [None]
